FAERS Safety Report 5263988-5 (Version None)
Quarter: 2007Q1

REPORT INFORMATION
  Report Type: 
  Country: None (occurrence: None)
  Receive Date: 20061213
  Receipt Date: 20051128
  Transmission Date: 20070707
  Serious: Yes (Other)
  Sender: FDA-Public Use
  Company Number: 2005UW17913

PATIENT
  Age: 78 Year
  Sex: Female
  Weight: 2.26 kg

DRUGS (2)
  1. IRESSA [Suspect]
     Indication: LUNG NEOPLASM MALIGNANT
  2. ALLEGRA [Concomitant]

REACTIONS (3)
  - ACNE [None]
  - PRURITUS GENERALISED [None]
  - PRURITUS GENITAL [None]
